FAERS Safety Report 9661641 (Version 2)
Quarter: 2013Q4

REPORT INFORMATION
  Report Type: Spontaneous
  Country: US (occurrence: US)
  Receive Date: 20131031
  Receipt Date: 20131031
  Transmission Date: 20140711
  Serious: No
  Sender: FDA-Public Use
  Company Number: US-PURDUE-USA-2010-0055086

PATIENT
  Age: 33 Year
  Sex: Female
  Weight: 38 kg

DRUGS (2)
  1. OXYCONTIN (NDA 22-272) [Suspect]
     Indication: PAIN
     Dosage: 480 MG, TID
  2. OXYCONTIN (NDA 22-272) [Suspect]
     Dosage: 160 MG, HS

REACTIONS (5)
  - Micturition disorder [Unknown]
  - Dysuria [Unknown]
  - Diarrhoea [Unknown]
  - Nausea [Unknown]
  - Abdominal pain upper [Unknown]
